FAERS Safety Report 5568192-9 (Version None)
Quarter: 2007Q4

REPORT INFORMATION
  Report Type: 
  Country: None (occurrence: None)
  Receive Date: 20071220
  Receipt Date: 20071217
  Transmission Date: 20080405
  Serious: Yes (Other)
  Sender: FDA-Public Use
  Company Number: IT-BRISTOL-MYERS SQUIBB COMPANY-14019038

PATIENT
  Age: 66 Year
  Sex: Male

DRUGS (4)
  1. WARFARIN SODIUM [Interacting]
     Indication: INTERNATIONAL NORMALISED RATIO
     Dosage: ONE DOSAGE FORM = 3.75 MG TO 5 MG
  2. LOPINAVIR AND RITONAVIR [Interacting]
     Indication: ANTIRETROVIRAL THERAPY
     Dosage: LOPINAVIR + RITONAVIR 400 MG/100 MG
  3. LAMIVUDINE [Suspect]
     Indication: ANTIRETROVIRAL THERAPY
  4. ZIDOVUDINE [Suspect]
     Indication: ANTIRETROVIRAL THERAPY

REACTIONS (1)
  - DRUG INTERACTION [None]
